APPROVED DRUG PRODUCT: OFLOXACIN
Active Ingredient: OFLOXACIN
Strength: 0.3%
Dosage Form/Route: SOLUTION/DROPS;OTIC
Application: A076616 | Product #001
Applicant: HIKMA PHARMACEUTICALS USA INC
Approved: Mar 17, 2008 | RLD: No | RS: No | Type: DISCN